FAERS Safety Report 10976204 (Version 2)
Quarter: 2015Q2

REPORT INFORMATION
  Report Type: Spontaneous
  Country: US (occurrence: US)
  Receive Date: 20150401
  Receipt Date: 20150525
  Transmission Date: 20150821
  Serious: Yes (Other)
  Sender: FDA-Public Use
  Company Number: US-JNJFOC-20140414401

PATIENT
  Sex: Male

DRUGS (1)
  1. RISPERDAL [Suspect]
     Active Substance: RISPERIDONE
     Indication: BIPOLAR DISORDER
     Route: 048
     Dates: start: 20040415, end: 20080304

REACTIONS (6)
  - Obesity [Unknown]
  - Akathisia [Unknown]
  - Hyperglycaemia [Unknown]
  - Emotional distress [Unknown]
  - Gynaecomastia [Unknown]
  - Hyperprolactinaemia [Unknown]
